FAERS Safety Report 5242341-4 (Version None)
Quarter: 2007Q1

REPORT INFORMATION
  Report Type: 
  Country: None (occurrence: None)
  Receive Date: 20070216
  Receipt Date: 20070216
  Transmission Date: 20070707
  Serious: Yes (Hospitalization)
  Sender: FDA-Public Use
  Company Number: None

PATIENT
  Age: 54 Year
  Sex: Male

DRUGS (5)
  1. AMILORIDE HYDROCHLORIDE [Suspect]
     Indication: HYPERTENSION
     Dosage: 20 MG QD
     Dates: start: 20061011
  2. DSS [Concomitant]
  3. FOLIC ACID [Concomitant]
  4. PROPRANOLOL [Concomitant]
  5. THIAMINE [Concomitant]

REACTIONS (1)
  - HYPERKALAEMIA [None]
